FAERS Safety Report 24113164 (Version 4)
Quarter: 2024Q3

REPORT INFORMATION
  Report Type: Spontaneous
  Country: US (occurrence: US)
  Receive Date: 20240719
  Receipt Date: 20240725
  Transmission Date: 20241016
  Serious: No
  Sender: GILEAD
  Company Number: US-GILEAD-2024-0680550

PATIENT
  Age: 55 Year
  Sex: Female
  Weight: 67 kg

DRUGS (29)
  1. LENACAPAVIR [Suspect]
     Active Substance: LENACAPAVIR
     Indication: HIV infection
     Dosage: 927 MG, Q6MO
     Route: 058
     Dates: start: 20240621
  2. CABENUVA [Concomitant]
     Active Substance: CABOTEGRAVIR\RILPIVIRINE
  3. FLUTICASONE [Concomitant]
     Active Substance: FLUTICASONE
  4. AMLODIPINE [Concomitant]
     Active Substance: AMLODIPINE BESYLATE
  5. ATOVAQUONE [Concomitant]
     Active Substance: ATOVAQUONE
  6. AZELASTINE [Concomitant]
     Active Substance: AZELASTINE\AZELASTINE HYDROCHLORIDE
  7. BECLOMETHASONE [Concomitant]
     Active Substance: BECLOMETHASONE
  8. CARVEDILOL [Concomitant]
     Active Substance: CARVEDILOL
  9. CETIRIZINE [Concomitant]
     Active Substance: CETIRIZINE HYDROCHLORIDE
  10. CHLORHEXIDINE [Concomitant]
     Active Substance: CHLORHEXIDINE
  11. CHOLECALCIFEROL [Concomitant]
     Active Substance: CHOLECALCIFEROL
  12. DIPHENHYDRAMINE [Concomitant]
     Active Substance: DIPHENHYDRAMINE
  13. DUPIXENT [Concomitant]
     Active Substance: DUPILUMAB
  14. JARDIANCE [Concomitant]
     Active Substance: EMPAGLIFLOZIN
  15. EPIPEN [Concomitant]
     Active Substance: EPINEPHRINE
  16. HYDRALAZINE [Concomitant]
     Active Substance: HYDRALAZINE HYDROCHLORIDE
  17. LANTUS [Concomitant]
     Active Substance: INSULIN GLARGINE
  18. INSULIN NOS [Concomitant]
     Active Substance: INSULIN NOS
  19. LOPERAMIDE [Concomitant]
     Active Substance: LOPERAMIDE
  20. LOSARTAN [Concomitant]
     Active Substance: LOSARTAN
  21. MAGNESIUM OXIDE [Concomitant]
     Active Substance: MAGNESIUM OXIDE
  22. MELOXICAM [Concomitant]
     Active Substance: MELOXICAM
  23. FORTAMET [Concomitant]
     Active Substance: METFORMIN HYDROCHLORIDE
  24. MUCUS RELIEF ER [Concomitant]
     Active Substance: GUAIFENESIN
  25. VITAMINS [Concomitant]
     Active Substance: VITAMINS
  26. NYSTATIN [Concomitant]
     Active Substance: NYSTATIN
  27. OFLOXACIN [Concomitant]
     Active Substance: OFLOXACIN
  28. OMEPRAZOLE [Concomitant]
     Active Substance: OMEPRAZOLE
  29. CRESTOR [Concomitant]
     Active Substance: ROSUVASTATIN CALCIUM

REACTIONS (1)
  - Wrong technique in product usage process [Recovered/Resolved]

NARRATIVE: CASE EVENT DATE: 20240621
